FAERS Safety Report 6054539-6 (Version None)
Quarter: 2009Q1

REPORT INFORMATION
  Report Type: 
  Country: None (occurrence: None)
  Receive Date: 20090127
  Receipt Date: 20090121
  Transmission Date: 20090719
  Serious: Yes (Hospitalization, Other)
  Sender: FDA-Public Use
  Company Number: PHBS2009NL00558

PATIENT
  Age: 32 Year
  Sex: Female

DRUGS (2)
  1. OXYTOCIN [Suspect]
  2. RITODRINE HYDROCHLORIDE [Concomitant]
     Indication: UTERINE CONTRACTIONS ABNORMAL
     Route: 042

REACTIONS (6)
  - ARRESTED LABOUR [None]
  - CAESAREAN SECTION [None]
  - DRUG EXPOSURE DURING PREGNANCY [None]
  - HAEMORRHAGE [None]
  - PREMATURE LABOUR [None]
  - UMBILICAL CORD ABNORMALITY [None]
